FAERS Safety Report 6050572-9 (Version None)
Quarter: 2009Q1

REPORT INFORMATION
  Report Type: 
  Country: None (occurrence: None)
  Receive Date: 20090122
  Receipt Date: 20090122
  Transmission Date: 20090719
  Serious: No
  Sender: FDA-Public Use
  Company Number: None

PATIENT
  Age: 65 Year
  Sex: Male
  Weight: 81.2 kg

DRUGS (1)
  1. VARENICLINE [Suspect]
     Dates: start: 20071224, end: 20080730

REACTIONS (2)
  - CONFUSIONAL STATE [None]
  - SEDATION [None]
